FAERS Safety Report 9249229 (Version 2)
Quarter: 2013Q2

REPORT INFORMATION
  Report Type: Spontaneous
  Country: US (occurrence: US)
  Receive Date: 20130422
  Receipt Date: 20130429
  Transmission Date: 20140414
  Serious: Yes (Other)
  Sender: FDA-Public Use
  Company Number: US-RB-053269-13

PATIENT
  Age: 69 Year
  Sex: Male

DRUGS (1)
  1. MUCINEX [Suspect]
     Indication: PRODUCT USED FOR UNKNOWN INDICATION
     Dosage: TOOK 1 PILL AT 6:00 PM ON 15-APR-2013, 1 AT 6:00 AM ON 16-APR-2013 AND 1 AT 6:00 PM ON 16-APR-2013
     Route: 048
     Dates: start: 20130415

REACTIONS (1)
  - Epistaxis [Recovered/Resolved]
